FAERS Safety Report 7539137-7 (Version None)
Quarter: 2011Q2

REPORT INFORMATION
  Report Type: 
  Country: None (occurrence: None)
  Receive Date: 20110610
  Receipt Date: 20020828
  Transmission Date: 20111010
  Serious: Yes (Death)
  Sender: FDA-Public Use
  Company Number: PHFR2002GB01867

PATIENT

DRUGS (1)
  1. CLOZAPINE [Suspect]
     Indication: SCHIZOPHRENIA
     Dosage: 575 MG/DAY
     Route: 048
     Dates: start: 19940620

REACTIONS (5)
  - VENTRICULAR FAILURE [None]
  - CIRCULATORY COLLAPSE [None]
  - CORONARY ARTERY THROMBOSIS [None]
  - ARTERIOSCLEROSIS CORONARY ARTERY [None]
  - LEFT VENTRICULAR HYPERTROPHY [None]
